FAERS Safety Report 5947111-7 (Version None)
Quarter: 2008Q4

REPORT INFORMATION
  Report Type: 
  Country: None (occurrence: None)
  Receive Date: 20081110
  Receipt Date: 20081031
  Transmission Date: 20090506
  Serious: Yes (Other)
  Sender: FDA-Public Use
  Company Number: JP-B.I. PHARMACEUTICALS,INC./RIDGEFIELD-2008-BP-16630NB

PATIENT
  Age: 63 Year
  Sex: Male

DRUGS (2)
  1. BI-SIFROL TABLETS [Suspect]
     Indication: PARKINSON'S DISEASE
     Dosage: 2MG
     Route: 048
     Dates: start: 20061215, end: 20080723
  2. EC-DOPARL [Concomitant]
     Indication: PARKINSON'S DISEASE
     Route: 048

REACTIONS (3)
  - OEDEMA PERIPHERAL [None]
  - RHABDOMYOLYSIS [None]
  - TUMOUR INVASION [None]
